FAERS Safety Report 7234825-4 (Version None)
Quarter: 2011Q1

REPORT INFORMATION
  Report Type: 
  Country: None (occurrence: None)
  Receive Date: 20110120
  Receipt Date: 20110110
  Transmission Date: 20110831
  Serious: Yes (Other)
  Sender: FDA-Public Use
  Company Number: FR-BAXTER-2011BH000686

PATIENT
  Age: 16 Year
  Sex: Male

DRUGS (1)
  1. GAMMAGARD LIQUID [Suspect]
     Indication: PRODUCT USED FOR UNKNOWN INDICATION
     Route: 042
     Dates: start: 20101222, end: 20101222

REACTIONS (5)
  - TACHYCARDIA [None]
  - BLOOD PRESSURE SYSTOLIC INCREASED [None]
  - LIVEDO RETICULARIS [None]
  - HYPERTHERMIA [None]
  - CHILLS [None]
